FAERS Safety Report 24589500 (Version 1)
Quarter: 2024Q4

REPORT INFORMATION
  Report Type: Spontaneous
  Country: US (occurrence: US)
  Receive Date: 20241107
  Receipt Date: 20241107
  Transmission Date: 20250115
  Serious: No
  Sender: INCYTE
  Company Number: US-INCYTE CORPORATION-2024IN011530

PATIENT

DRUGS (1)
  1. JAKAFI [Suspect]
     Active Substance: RUXOLITINIB
     Indication: Myelodysplastic syndrome with excess blasts
     Dosage: 10 MILLIGRAM, BID
     Route: 048

REACTIONS (2)
  - Joint swelling [Unknown]
  - Off label use [Unknown]
